FAERS Safety Report 26206040 (Version 1)
Quarter: 2025Q4

REPORT INFORMATION
  Report Type: Spontaneous
  Country: EU (occurrence: EU)
  Receive Date: 20251229
  Receipt Date: 20251229
  Transmission Date: 20260117
  Serious: Yes (Life-Threatening, Hospitalization)
  Sender: EXELIXIS
  Company Number: EU-IPSEN Group, Research and Development-2025-31859

PATIENT
  Age: 66 Year
  Sex: Female

DRUGS (1)
  1. CABOMETYX [Suspect]
     Active Substance: CABOZANTINIB S-MALATE
     Indication: Clear cell renal cell carcinoma
     Dosage: 60 MG, QD
     Route: 048
     Dates: start: 20250918, end: 20251103

REACTIONS (2)
  - Bacterial sepsis [Recovered/Resolved]
  - Pulmonary embolism [Not Recovered/Not Resolved]

NARRATIVE: CASE EVENT DATE: 20251103
